FAERS Safety Report 5268650-0 (Version None)
Quarter: 2007Q1

REPORT INFORMATION
  Report Type: 
  Country: None (occurrence: None)
  Receive Date: 20061213
  Receipt Date: 20040831
  Transmission Date: 20070707
  Serious: Yes (Other)
  Sender: FDA-Public Use
  Company Number: 2004UW18414

PATIENT
  Age: 50 Year
  Sex: Female

DRUGS (3)
  1. IRESSA [Suspect]
     Dates: start: 20040819
  2. CARBOPLATIN [Suspect]
  3. TAXOTERE [Suspect]
     Dates: end: 20040713

REACTIONS (3)
  - NEUROPATHY [None]
  - PALMAR-PLANTAR ERYTHRODYSAESTHESIA SYNDROME [None]
  - RESPIRATORY DISORDER [None]
